FAERS Safety Report 12504548 (Version 1)
Quarter: 2016Q2

REPORT INFORMATION
  Report Type: Spontaneous
  Country: DE (occurrence: DE)
  Receive Date: 20160628
  Receipt Date: 20160628
  Transmission Date: 20160815
  Serious: Yes (Other)
  Sender: FDA-Public Use
  Company Number: DE-TEVA-670763GER

PATIENT
  Age: 17 Year
  Sex: Female

DRUGS (1)
  1. ASUMATE 20 [Suspect]
     Active Substance: ETHINYL ESTRADIOL\LEVONORGESTREL
     Indication: ORAL CONTRACEPTION
     Dosage: 1 DOSAGE FORMS DAILY; 1 DOSAGE FORM CONTAINS 100 MCG LEVONORGESTREL AND 20 MCG ETHINYLESTRADIOL
     Route: 048
     Dates: start: 20160315, end: 20160410

REACTIONS (6)
  - Perineal abscess [Recovering/Resolving]
  - Oedema genital [Recovering/Resolving]
  - Metrorrhagia [Recovering/Resolving]
  - Rash [Recovering/Resolving]
  - Skin disorder [Recovering/Resolving]
  - Pain in extremity [Recovering/Resolving]

NARRATIVE: CASE EVENT DATE: 20160407
